FAERS Safety Report 9264331 (Version 1)
Quarter: 2013Q2

REPORT INFORMATION
  Report Type: Spontaneous
  Country: CA (occurrence: CA)
  Receive Date: 20130430
  Receipt Date: 20130430
  Transmission Date: 20140414
  Serious: Yes (Death)
  Sender: FDA-Public Use
  Company Number: CA-PFIZER INC-2008046019

PATIENT
  Age: 26 Year
  Sex: Male

DRUGS (4)
  1. CHAMPIX [Suspect]
     Indication: SMOKING CESSATION THERAPY
     Dosage: UNK
     Route: 048
     Dates: start: 20080109
  2. CANNABIS [Concomitant]
     Dosage: UNK
  3. COCAINE [Concomitant]
     Dosage: UNK
  4. METHAMPHETAMINE [Concomitant]
     Dosage: UNK

REACTIONS (2)
  - Completed suicide [Fatal]
  - Hypoxia [Fatal]
